FAERS Safety Report 7158360-7 (Version None)
Quarter: 2010Q4

REPORT INFORMATION
  Report Type: 
  Country: None (occurrence: None)
  Receive Date: 20101214
  Receipt Date: 20100206
  Transmission Date: 20110411
  Serious: No
  Sender: FDA-Public Use
  Company Number: US-PFIZER INC-2010019103

PATIENT

DRUGS (2)
  1. ARTHROTEC [Suspect]
     Dosage: 50 EC, 2X/DAY
  2. METFORMIN HCL [Suspect]
     Dosage: 500 MORNING, 1000 EVENING

REACTIONS (1)
  - BLOOD GLUCOSE DECREASED [None]
